FAERS Safety Report 24758213 (Version 1)
Quarter: 2024Q4

REPORT INFORMATION
  Report Type: Spontaneous
  Country: US (occurrence: US)
  Receive Date: 20241220
  Receipt Date: 20241220
  Transmission Date: 20250114
  Serious: Yes (Other)
  Sender: Vantive US Healthcare
  Company Number: US-VANTIVE-2024VAN021846

PATIENT
  Sex: Female

DRUGS (1)
  1. EXTRANEAL [Suspect]
     Active Substance: CALCIUM CHLORIDE\ICODEXTRIN\MAGNESIUM CHLORIDE\SODIUM CHLORIDE\SODIUM LACTATE
     Dosage: UNK
     Route: 033

REACTIONS (3)
  - Cardiac failure [Unknown]
  - Pneumonia [Unknown]
  - Swelling [Unknown]
